FAERS Safety Report 21507339 (Version 2)
Quarter: 2022Q4

REPORT INFORMATION
  Report Type: Spontaneous
  Country: US (occurrence: US)
  Receive Date: 20221026
  Receipt Date: 20221122
  Transmission Date: 20230113
  Serious: No
  Sender: FDA-Public Use
  Company Number: US-SA-SAC00000000014740

PATIENT
  Age: 58 Year
  Sex: Female

DRUGS (1)
  1. CEREZYME [Suspect]
     Active Substance: IMIGLUCERASE
     Indication: Gaucher^s disease
     Dosage: 3600 IU, QOW
     Route: 041
     Dates: start: 20210910

REACTIONS (2)
  - Weight decreased [Unknown]
  - Illness [Unknown]

NARRATIVE: CASE EVENT DATE: 20221110
